FAERS Safety Report 12899186 (Version 8)
Quarter: 2017Q3

REPORT INFORMATION
  Report Type: Spontaneous
  Country: US (occurrence: US)
  Receive Date: 20161101
  Receipt Date: 20170704
  Transmission Date: 20171127
  Serious: Yes (Life-Threatening, Congenital Anomaly, Other)
  Sender: FDA-Public Use
  Company Number: PHEH2016US028265

PATIENT
  Sex: Male

DRUGS (2)
  1. ZOFRAN ODT [Suspect]
     Active Substance: ONDANSETRON HYDROCHLORIDE
     Indication: FOETAL EXPOSURE DURING PREGNANCY
     Dosage: UNK
     Route: 064
  2. ONDANSETRON HYDROCHLORIDE. [Suspect]
     Active Substance: ONDANSETRON HYDROCHLORIDE
     Indication: FOETAL EXPOSURE DURING PREGNANCY
     Dosage: MOTHER^S DOSE: 8 MG, BID
     Route: 064

REACTIONS (22)
  - Left ventricular hypertrophy [Unknown]
  - Mitral valve incompetence [Unknown]
  - Sinus tachycardia [Unknown]
  - Atrial septal defect [Unknown]
  - Left-to-right cardiac shunt [Unknown]
  - Acute respiratory failure [Unknown]
  - Pain [Unknown]
  - Left ventricular dilatation [Unknown]
  - Pericardial effusion [Recovered/Resolved]
  - Anhedonia [Unknown]
  - Foetal exposure during pregnancy [Unknown]
  - Pleural effusion [Unknown]
  - Lung hyperinflation [Unknown]
  - Congenital anomaly [Unknown]
  - Left atrial dilatation [Unknown]
  - Injury [Unknown]
  - Cardiomegaly [Unknown]
  - Cardiac murmur [Unknown]
  - Ventricular septal defect [Unknown]
  - Aortic valve incompetence [Unknown]
  - Mitral valve disease [Unknown]
  - Anxiety [Unknown]
